FAERS Safety Report 24229819 (Version 1)
Quarter: 2024Q3

REPORT INFORMATION
  Report Type: Spontaneous
  Country: ES (occurrence: ES)
  Receive Date: 20240820
  Receipt Date: 20240820
  Transmission Date: 20241017
  Serious: Yes (Hospitalization)
  Sender: TEVA
  Company Number: None

PATIENT
  Age: 66 Year
  Sex: Male

DRUGS (3)
  1. MYCOPHENOLATE MOFETIL [Interacting]
     Active Substance: MYCOPHENOLATE MOFETIL
     Indication: Prophylaxis against transplant rejection
     Dosage: MICOFENOLATO DE MOFETILO (7330LM)
     Route: 048
     Dates: start: 1998, end: 20240512
  2. PREDNISONE [Interacting]
     Active Substance: PREDNISONE
     Indication: Prophylaxis against transplant rejection
     Dosage: PREDNISONA (886A)
     Route: 048
     Dates: start: 1998
  3. CYCLOSPORINE [Interacting]
     Active Substance: CYCLOSPORINE
     Indication: Prophylaxis against transplant rejection
     Dosage: CICLOSPORINA (406A)
     Route: 048
     Dates: start: 1998, end: 20240512

REACTIONS (2)
  - Septic shock [Recovered/Resolved]
  - Urinary tract infection [Recovered/Resolved]

NARRATIVE: CASE EVENT DATE: 20240512
